FAERS Safety Report 8367743-9 (Version None)
Quarter: 2012Q2

REPORT INFORMATION
  Report Type: 
  Country: None (occurrence: None)
  Receive Date: 20120517
  Receipt Date: 20120508
  Transmission Date: 20120825
  Serious: Yes (Other)
  Sender: FDA-Public Use
  Company Number: JP-GLAXOSMITHKLINE-B0746068A

PATIENT
  Sex: Female

DRUGS (6)
  1. DEPAKENE [Concomitant]
     Dosage: 100MG PER DAY
     Route: 048
  2. FERROUS CITRATE [Concomitant]
     Dosage: 50MG PER DAY
     Route: 048
  3. ZOLPIDEM [Concomitant]
     Dosage: 2.5MG PER DAY
     Route: 048
  4. DESYREL [Concomitant]
     Dosage: 25MG PER DAY
     Route: 048
  5. LAMICTAL [Suspect]
     Indication: BIPOLAR II DISORDER
     Dosage: 25MG TWICE PER DAY
     Route: 048
     Dates: start: 20090513, end: 20090730
  6. LAMICTAL [Suspect]
     Dosage: 50MG PER DAY
     Dates: end: 20090910

REACTIONS (3)
  - GASTROINTESTINAL HAEMORRHAGE [None]
  - CONJUNCTIVITIS [None]
  - ECZEMA [None]
